FAERS Safety Report 10876378 (Version 1)
Quarter: 2015Q1

REPORT INFORMATION
  Report Type: Spontaneous
  Country: GB (occurrence: GB)
  Receive Date: 20150228
  Receipt Date: 20150228
  Transmission Date: 20150721
  Serious: Yes (Hospitalization)
  Sender: FDA-Public Use
  Company Number: GB-ALKEM-000871

PATIENT
  Age: 86 Year
  Sex: Female

DRUGS (13)
  1. LEVOTHYROXINE [Concomitant]
     Active Substance: LEVOTHYROXINE
  2. NICORANDIL [Concomitant]
     Active Substance: NICORANDIL
  3. LANSOPRAZOLE. [Concomitant]
     Active Substance: LANSOPRAZOLE
  4. BISOPROLOL [Concomitant]
     Active Substance: BISOPROLOL
  5. SALBUTAMOL [Concomitant]
     Active Substance: ALBUTEROL
  6. VALSARTAN. [Concomitant]
     Active Substance: VALSARTAN
  7. QUININE [Concomitant]
     Active Substance: QUININE
  8. PARACETAMOL [Concomitant]
     Active Substance: ACETAMINOPHEN
  9. QUETIAPINE/QUETIAPINE FUMARATE [Suspect]
     Active Substance: QUETIAPINE FUMARATE
     Indication: PSYCHOTIC DISORDER
     Route: 048
     Dates: start: 20131008
  10. SIMVASTATIN. [Concomitant]
     Active Substance: SIMVASTATIN
  11. CLOPIDOGREL [Concomitant]
     Active Substance: CLOPIDOGREL BISULFATE
  12. ISOSORBIDE [Concomitant]
     Active Substance: ISOSORBIDE
  13. VALPROIC ACID. [Concomitant]
     Active Substance: VALPROIC ACID

REACTIONS (2)
  - Unresponsive to stimuli [Recovered/Resolved with Sequelae]
  - Depressed level of consciousness [Unknown]

NARRATIVE: CASE EVENT DATE: 20150121
